FAERS Safety Report 8078510-8 (Version None)
Quarter: 2012Q1

REPORT INFORMATION
  Report Type: 
  Country: None (occurrence: None)
  Receive Date: 20120127
  Receipt Date: 20120127
  Transmission Date: 20120608
  Serious: Yes (Death, Hospitalization)
  Sender: FDA-Public Use
  Company Number: None

PATIENT
  Age: 58 Year
  Sex: Male
  Weight: 111.9 kg

DRUGS (2)
  1. WARFARIN SODIUM [Suspect]
     Indication: CARDIOMYOPATHY
     Dosage: 6.75 MG EVERY DAY PO
     Route: 048
     Dates: start: 20101108, end: 20120103
  2. WARFARIN SODIUM [Suspect]
     Indication: AORTIC VALVE REPLACEMENT
     Dosage: 6.75 MG EVERY DAY PO
     Route: 048
     Dates: start: 20101108, end: 20120103

REACTIONS (4)
  - INTERNATIONAL NORMALISED RATIO DECREASED [None]
  - FALL [None]
  - CEREBROVASCULAR ACCIDENT [None]
  - HAEMORRHAGE INTRACRANIAL [None]
